FAERS Safety Report 6515868-2 (Version None)
Quarter: 2009Q4

REPORT INFORMATION
  Report Type: 
  Country: None (occurrence: None)
  Receive Date: 20091223
  Receipt Date: 20091217
  Transmission Date: 20100525
  Serious: Yes (Other)
  Sender: FDA-Public Use
  Company Number: US-RB-027090-09

PATIENT
  Age: 75 Year
  Sex: Female

DRUGS (4)
  1. MUCINEX [Suspect]
     Indication: RESPIRATORY TRACT CONGESTION
     Dosage: TOOK 1 TABLET LAST NIGHT AND 1 TABLET THIS MORNING
     Route: 048
     Dates: start: 20091215
  2. LISINOPRIL [Concomitant]
  3. AFRIN [Concomitant]
  4. HYDROCHLOROTHIAZIDE 25MG [Concomitant]

REACTIONS (1)
  - BLOOD PRESSURE INCREASED [None]
